FAERS Safety Report 20038328 (Version 4)
Quarter: 2021Q4

REPORT INFORMATION
  Report Type: Report from Study
  Country: FR (occurrence: FR)
  Receive Date: 20211105
  Receipt Date: 20211220
  Transmission Date: 20220303
  Serious: Yes (Other)
  Sender: FDA-Public Use
  Company Number: FR-SERVIER-S21011980

PATIENT

DRUGS (7)
  1. PEGASPARGASE [Suspect]
     Active Substance: PEGASPARGASE
     Indication: Acute lymphocytic leukaemia
     Dosage: UNK
     Route: 042
  2. PREDNISOLONE [Suspect]
     Active Substance: PREDNISOLONE
     Indication: Acute lymphocytic leukaemia
     Dosage: 70 MG, D1 TO D7, D8 TO D28 INDUCTION
     Route: 048
     Dates: start: 20190315, end: 20190411
  3. TN UNSPECIFIED [Concomitant]
     Indication: Acute lymphocytic leukaemia
     Dosage: 7.5 MG, D1 AND D7, EVERY 10 WEEKS MAINTENANCE THERAPY
     Route: 048
     Dates: start: 20190905, end: 20190929
  4. TN UNSPECIFIED [Concomitant]
     Indication: Acute lymphocytic leukaemia
     Dosage: 1.6 MG, D1 AND D8, EVERY 10 WEEKS
     Route: 042
     Dates: start: 20191118, end: 20210316
  5. TN UNSPECIFIED [Concomitant]
     Indication: Acute lymphocytic leukaemia
     Dosage: 50 MG, QD
     Route: 048
     Dates: start: 20191118, end: 20210316
  6. TN UNSPECIFIED [Concomitant]
     Indication: Acute lymphocytic leukaemia
     Dosage: 27.5 MG, 1X/WEEK
     Route: 048
     Dates: start: 20191118
  7. TN UNSPECIFIED [Concomitant]
     Dosage: 15 MG, ON D15
     Route: 037
     Dates: start: 20191202, end: 20210316

REACTIONS (1)
  - Osteonecrosis [Not Recovered/Not Resolved]

NARRATIVE: CASE EVENT DATE: 20210913
